FAERS Safety Report 10189990 (Version 3)
Quarter: 2015Q2

REPORT INFORMATION
  Report Type: Spontaneous
  Country: US (occurrence: US)
  Receive Date: 20140522
  Receipt Date: 20150505
  Transmission Date: 20150821
  Serious: Yes (Hospitalization, Other)
  Sender: FDA-Public Use
  Company Number: US-ELI_LILLY_AND_COMPANY-US201405004483

PATIENT
  Age: 55 Year
  Sex: Male
  Weight: 133.79 kg

DRUGS (12)
  1. AXIRON [Suspect]
     Active Substance: TESTOSTERONE
     Indication: BLOOD TESTOSTERONE DECREASED
     Dosage: 60 MG, QD
     Dates: start: 201112, end: 201202
  2. LIPITOR [Concomitant]
     Active Substance: ATORVASTATIN CALCIUM
     Indication: BLOOD CHOLESTEROL INCREASED
     Dosage: 40 MG, QD
  3. ANDROGEL [Concomitant]
     Active Substance: TESTOSTERONE
     Dosage: UNK, UNKNOWN
     Dates: start: 20120413
  4. AXIRON [Suspect]
     Active Substance: TESTOSTERONE
     Dosage: 90 MG, QD
     Dates: start: 201204, end: 20120504
  5. CIALIS [Concomitant]
     Active Substance: TADALAFIL
  6. BENAZEPRIL [Concomitant]
     Active Substance: BENAZEPRIL\BENAZEPRIL HYDROCHLORIDE
     Dosage: 12.5 MG, QD
     Dates: start: 20111104
  7. BUMEX [Concomitant]
     Active Substance: BUMETANIDE
     Dosage: 2 MG, QD
     Dates: start: 20120413
  8. LISINOPRIL. [Concomitant]
     Active Substance: LISINOPRIL
     Indication: HYPERTENSION
     Dosage: UNK, QD
  9. OXAPROZIN. [Concomitant]
     Active Substance: OXAPROZIN
     Dosage: UNK, UNKNOWN
     Dates: start: 20111103
  10. ASPIRIN                            /00002701/ [Concomitant]
     Active Substance: ASPIRIN
     Dosage: 81 MG, QD
  11. KCL [Concomitant]
     Active Substance: POTASSIUM CHLORIDE
     Dosage: 10 MEQ, QD
     Dates: start: 20120413
  12. NEXIUM [Concomitant]
     Active Substance: ESOMEPRAZOLE MAGNESIUM
     Indication: DYSPEPSIA
     Dosage: 40 MG, QD
     Dates: start: 20120208

REACTIONS (4)
  - Anxiety [Unknown]
  - Deep vein thrombosis [Unknown]
  - Thrombophlebitis superficial [Unknown]
  - Dyspnoea [Not Recovered/Not Resolved]

NARRATIVE: CASE EVENT DATE: 20120509
